FAERS Safety Report 8488291-1 (Version None)
Quarter: 2012Q3

REPORT INFORMATION
  Report Type: 
  Country: None (occurrence: None)
  Receive Date: 20120705
  Receipt Date: 20120625
  Transmission Date: 20120928
  Serious: Yes (Hospitalization)
  Sender: FDA-Public Use
  Company Number: CA-JNJFOC-20120607574

PATIENT
  Sex: Male
  Weight: 68 kg

DRUGS (4)
  1. METHOTREXATE [Concomitant]
     Route: 058
  2. VENTOLIN [Concomitant]
     Dosage: 1-2 PUFFS
     Route: 065
  3. UNKNOWN MEDICATION [Concomitant]
     Route: 042
     Dates: start: 20120625
  4. REMICADE [Suspect]
     Indication: RHEUMATOID ARTHRITIS
     Route: 042
     Dates: start: 20120504

REACTIONS (2)
  - STAPHYLOCOCCAL SEPSIS [None]
  - NEPHRITIS [None]
